FAERS Safety Report 24692166 (Version 3)
Quarter: 2025Q3

REPORT INFORMATION
  Report Type: Spontaneous
  Country: EU (occurrence: EU)
  Receive Date: 20241203
  Receipt Date: 20250802
  Transmission Date: 20251021
  Serious: Yes (Other)
  Sender: ALEXION PHARMACEUTICALS
  Company Number: EU-SA-2024SA345282

PATIENT
  Sex: Male

DRUGS (1)
  1. NIRSEVIMAB [Suspect]
     Active Substance: NIRSEVIMAB
     Route: 065

REACTIONS (2)
  - Respiratory syncytial virus bronchiolitis [Unknown]
  - Wheezing [Unknown]
